FAERS Safety Report 5402309-1 (Version None)
Quarter: 2007Q3

REPORT INFORMATION
  Report Type: 
  Country: None (occurrence: None)
  Receive Date: 20070801
  Receipt Date: 20070725
  Transmission Date: 20080115
  Serious: Yes (Other)
  Sender: FDA-Public Use
  Company Number: DE-AVENTIS-200712035DE

PATIENT
  Age: 43 Year
  Sex: Female

DRUGS (2)
  1. CLEXANE [Suspect]
     Indication: DRUG USE FOR UNKNOWN INDICATION
     Dosage: DOSE: 12X60
     Dates: start: 20070701, end: 20070701
  2. HYPNOTICS AND SEDATIVES [Concomitant]
     Dosage: DOSE: NOT REPORTED

REACTIONS (1)
  - INTENTIONAL OVERDOSE [None]
